FAERS Safety Report 9375848 (Version 1)
Quarter: 2013Q2

REPORT INFORMATION
  Report Type: Spontaneous
  Country: IT (occurrence: IT)
  Receive Date: 20130628
  Receipt Date: 20130628
  Transmission Date: 20140414
  Serious: Yes (Hospitalization, Other)
  Sender: FDA-Public Use
  Company Number: IT-PFIZER INC-2013192845

PATIENT
  Age: 18 Year
  Sex: Female

DRUGS (5)
  1. LYRICA [Suspect]
     Dosage: 14 UNITS DOSE TOTAL
     Route: 048
     Dates: start: 20130509, end: 20130509
  2. DIAZEPAM [Suspect]
     Dosage: 15 ML TOTAL
     Route: 048
     Dates: start: 20130509, end: 20130509
  3. RIFADIN [Suspect]
     Dosage: 5 UNIT DOSE
     Route: 048
     Dates: start: 20130509, end: 20130509
  4. AUGMENTIN [Suspect]
     Dosage: 5 UNITS DOSE TOTAL
     Route: 048
     Dates: start: 20130509, end: 20130509
  5. TAPENTADOL [Suspect]
     Dosage: 2 UNITS DOSE TOTAL
     Route: 048
     Dates: start: 20130509, end: 20130509

REACTIONS (4)
  - Agitation [Unknown]
  - Confusional state [Unknown]
  - Drug abuse [Unknown]
  - Blood bilirubin unconjugated increased [Unknown]
